FAERS Safety Report 5831794-6 (Version None)
Quarter: 2008Q3

REPORT INFORMATION
  Report Type: 
  Country: None (occurrence: None)
  Receive Date: 20080804
  Receipt Date: 20080730
  Transmission Date: 20090109
  Serious: Yes (Other)
  Sender: FDA-Public Use
  Company Number: US-RANBAXY-2008US-16687

PATIENT

DRUGS (4)
  1. ISOTRETINOIN [Suspect]
     Indication: DRUG USE FOR UNKNOWN INDICATION
     Dosage: 20 MG, BID
     Route: 048
     Dates: start: 20080317, end: 20080724
  2. AMNESTEEM [Suspect]
     Indication: DRUG USE FOR UNKNOWN INDICATION
     Dosage: 40 MG, UNK
     Dates: start: 20080317, end: 20080724
  3. AMNESTEEM [Suspect]
     Dosage: 20 MG, UNK
  4. ORAL CONTRACEPTIVE [Suspect]
     Indication: ORAL CONTRACEPTION

REACTIONS (4)
  - BACK PAIN [None]
  - GENITAL HAEMORRHAGE [None]
  - HEADACHE [None]
  - PREGNANCY [None]
